FAERS Safety Report 7646778-5 (Version None)
Quarter: 2011Q3

REPORT INFORMATION
  Report Type: 
  Country: None (occurrence: None)
  Receive Date: 20110725
  Receipt Date: 20110719
  Transmission Date: 20111222
  Serious: Yes (Hospitalization)
  Sender: FDA-Public Use
  Company Number: WAES 1107DEU00080

PATIENT
  Age: 78 Year
  Sex: Female

DRUGS (4)
  1. LEVOTHYROXINE SODIUM [Concomitant]
  2. ATENOLOL [Concomitant]
  3. CAP VORINOSTAT [Suspect]
     Indication: SARCOMA METASTATIC
     Dosage: 400MG/DAILY, PO
     Route: 048
     Dates: start: 20110622
  4. TRIAMTERENE AND HYDROCHLOROTHIAZIDE [Concomitant]

REACTIONS (2)
  - APHASIA [None]
  - DISEASE RECURRENCE [None]
